FAERS Safety Report 25554256 (Version 1)
Quarter: 2025Q3

REPORT INFORMATION
  Report Type: Spontaneous
  Country: US (occurrence: None)
  Receive Date: 20250714
  Receipt Date: 20250714
  Transmission Date: 20251020
  Serious: Yes (Hospitalization)
  Sender: FDA-CTU
  Company Number: None

PATIENT
  Age: 71 Year
  Sex: Female
  Weight: 58.5 kg

DRUGS (5)
  1. OHTUVAYRE (ENSIFENTRINE) INHALATION SUSPENSION [Suspect]
     Active Substance: ENSIFENTRINE
     Indication: Chronic obstructive pulmonary disease
     Dosage: OTHER QUANTITY : 1 AMPOULE;?FREQUENCY : TWICE A DAY;?
     Route: 055
     Dates: start: 20250523, end: 20250607
  2. LIPITOR [Concomitant]
     Active Substance: ATORVASTATIN CALCIUM
  3. TRELEGY ELLIPTA [Concomitant]
     Active Substance: FLUTICASONE FUROATE\UMECLIDINIUM BROMIDE\VILANTEROL TRIFENATATE
  4. ALBUTEROL [Concomitant]
     Active Substance: ALBUTEROL
  5. NEXIUM [Concomitant]
     Active Substance: ESOMEPRAZOLE MAGNESIUM

REACTIONS (3)
  - Ischaemic stroke [None]
  - Erythema [None]
  - Blood pressure increased [None]

NARRATIVE: CASE EVENT DATE: 20250607
